FAERS Safety Report 9155572 (Version 2)
Quarter: 2013Q2

REPORT INFORMATION
  Report Type: Report from Study
  Country: AU (occurrence: AU)
  Receive Date: 20130311
  Receipt Date: 20130423
  Transmission Date: 20140414
  Serious: Yes (Hospitalization)
  Sender: FDA-Public Use
  Company Number: AU-GLAXOSMITHKLINE-B0833420C

PATIENT
  Age: 50 Year
  Sex: Female
  Weight: 78 kg

DRUGS (14)
  1. PAZOPANIB [Suspect]
     Indication: METASTATIC RENAL CELL CARCINOMA
     Dosage: 800MG PER DAY
     Route: 048
     Dates: start: 20121211
  2. DIAFORMIN [Concomitant]
     Indication: DIABETES MELLITUS
     Dosage: 850U THREE TIMES PER DAY
     Route: 048
     Dates: start: 20050101
  3. CRESTOR [Concomitant]
     Indication: HYPERCHOLESTEROLAEMIA
     Dosage: 20U PER DAY
     Route: 048
     Dates: start: 20050101
  4. INSULIN [Concomitant]
     Indication: DIABETES MELLITUS
     Dosage: 32U TWICE PER DAY
     Route: 058
     Dates: start: 20120701
  5. CENOVIS MULTIVITAMIN [Concomitant]
     Indication: ILL-DEFINED DISORDER
     Dosage: 1U PER DAY
     Route: 048
     Dates: start: 20121102
  6. TUMS ANTACID [Concomitant]
     Indication: NAUSEA
     Dosage: 2U AS REQUIRED
     Route: 048
     Dates: start: 20121211
  7. SUDAFED SINUS [Concomitant]
     Indication: SINUSITIS
     Route: 048
     Dates: start: 20130131
  8. METOCLOPRAMIDE [Concomitant]
     Indication: NAUSEA
     Dosage: 10U PER DAY
     Route: 042
     Dates: start: 20130219
  9. MORPHINE [Concomitant]
     Indication: PAIN
     Route: 042
     Dates: start: 20130219, end: 20130220
  10. PANTOPRAZOLE [Concomitant]
     Indication: PROPHYLAXIS
     Dosage: 40U TWICE PER DAY
     Route: 042
     Dates: start: 20130219, end: 20130224
  11. DROPERIDOL [Concomitant]
     Indication: NAUSEA
     Dosage: 500U PER DAY
     Route: 042
     Dates: start: 20130221, end: 20130221
  12. ENOXAPARIN [Concomitant]
     Indication: PROPHYLAXIS
     Dosage: 40U PER DAY
     Route: 058
     Dates: start: 20130220, end: 20130224
  13. PARACETAMOL [Concomitant]
     Indication: PAIN
     Dosage: 1U FOUR TIMES PER DAY
     Route: 048
     Dates: start: 20130219
  14. TROPISETRON [Concomitant]
     Indication: NAUSEA
     Dosage: 2U TWICE PER DAY
     Route: 042
     Dates: start: 20130220, end: 20130221

REACTIONS (1)
  - Caecitis [Recovered/Resolved]
